FAERS Safety Report 15664631 (Version 1)
Quarter: 2018Q4

REPORT INFORMATION
  Report Type: Other
  Country: ES (occurrence: ES)
  Receive Date: 20181128
  Receipt Date: 20181128
  Transmission Date: 20190205
  Serious: Yes (Other)
  Sender: FDA-Public Use
  Company Number: ES-CELLTRION INC.-2018ES024005

PATIENT

DRUGS (5)
  1. INFLIXIMAB (UNKNOWN) [Suspect]
     Active Substance: INFLIXIMAB
     Indication: PSORIATIC ARTHROPATHY
     Dosage: 5 MG/KG, LYOPHILIZED POWDER
     Route: 042
     Dates: start: 201702, end: 201702
  2. ADALIMUMAB [Suspect]
     Active Substance: ADALIMUMAB
     Indication: PSORIATIC ARTHROPATHY
     Dosage: 40 MG
     Route: 065
     Dates: start: 2017, end: 2018
  3. METHOTREXATE. [Concomitant]
     Active Substance: METHOTREXATE
     Dosage: 15 MG, 1 WEEK
     Route: 058
  4. INFLIXIMAB (UNKNOWN) [Suspect]
     Active Substance: INFLIXIMAB
     Indication: COLITIS ULCERATIVE
     Dosage: 5 MG/KG, LYOPHILIZED POWDER
     Route: 042
     Dates: start: 201711, end: 201711
  5. ADALIMUMAB [Suspect]
     Active Substance: ADALIMUMAB
     Indication: COLITIS ULCERATIVE

REACTIONS (6)
  - Episcleritis [Unknown]
  - Psoriasis [Unknown]
  - Urinary tract infection [Unknown]
  - Colitis ulcerative [Unknown]
  - Spinal osteoarthritis [Unknown]
  - Respiratory tract infection [Unknown]

NARRATIVE: CASE EVENT DATE: 201708
